FAERS Safety Report 14066189 (Version 2)
Quarter: 2017Q4

REPORT INFORMATION
  Report Type: Spontaneous
  Country: DK (occurrence: DK)
  Receive Date: 20171009
  Receipt Date: 20171102
  Transmission Date: 20180321
  Serious: Yes (Other)
  Sender: FDA-Public Use
  Company Number: DK-BRISTOL-MYERS SQUIBB COMPANY-BMS-2017-087903

PATIENT
  Age: 26 Year
  Sex: Male
  Weight: 129 kg

DRUGS (6)
  1. QUETIAPIN ^ACTAVIS^ [Suspect]
     Active Substance: QUETIAPINE FUMARATE
     Indication: RESTLESSNESS
     Dosage: 500 MG, UNK
     Route: 048
     Dates: start: 20170421
  2. QUETIAPIN ^ACTAVIS^ [Suspect]
     Active Substance: QUETIAPINE FUMARATE
     Indication: PRODUCT USED FOR UNKNOWN INDICATION
     Dosage: 200 MG, UNK
     Route: 048
     Dates: start: 20170421
  3. ABILIFY [Suspect]
     Active Substance: ARIPIPRAZOLE
     Indication: PSYCHOTIC DISORDER
     Dosage: 15 MG, QD
     Route: 048
     Dates: start: 20170515, end: 201705
  4. LYSANTIN [Concomitant]
     Active Substance: ORPHENADRINE HYDROCHLORIDE
     Indication: PRODUCT USED FOR UNKNOWN INDICATION
     Route: 065
     Dates: start: 20170427
  5. OXAPAX [Concomitant]
     Active Substance: OXAZEPAM
     Indication: SEDATION
     Route: 048
     Dates: start: 20170630, end: 20170701
  6. RIVOTRIL [Suspect]
     Active Substance: CLONAZEPAM
     Indication: SEDATION
     Dosage: 0.5 MG, QD
     Route: 065
     Dates: start: 20170607

REACTIONS (20)
  - Amnesia [Not Recovered/Not Resolved]
  - Disorientation [Not Recovered/Not Resolved]
  - Eye disorder [Unknown]
  - Skin sensitisation [Not Recovered/Not Resolved]
  - Extrapyramidal disorder [Not Recovered/Not Resolved]
  - Muscle spasms [Not Recovered/Not Resolved]
  - Accommodation disorder [Not Recovered/Not Resolved]
  - Confusional state [Not Recovered/Not Resolved]
  - Sedation [Not Recovered/Not Resolved]
  - Motion sickness [Unknown]
  - Hallucination [Not Recovered/Not Resolved]
  - Tremor [Not Recovered/Not Resolved]
  - Tardive dyskinesia [Not Recovered/Not Resolved]
  - Joint lock [Not Recovered/Not Resolved]
  - Product use in unapproved indication [Unknown]
  - Emphysema [Unknown]
  - Altered state of consciousness [Not Recovered/Not Resolved]
  - Akathisia [Not Recovered/Not Resolved]
  - Skin discolouration [Not Recovered/Not Resolved]
  - Memory impairment [Not Recovered/Not Resolved]

NARRATIVE: CASE EVENT DATE: 20170501
